FAERS Safety Report 5794761-7 (Version None)
Quarter: 2008Q2

REPORT INFORMATION
  Report Type: 
  Country: None (occurrence: None)
  Receive Date: 20080630
  Receipt Date: 20080618
  Transmission Date: 20081010
  Serious: Yes (Death)
  Sender: FDA-Public Use
  Company Number: JP-WYE-H04145608

PATIENT
  Age: 75 Year
  Sex: Male

DRUGS (5)
  1. AMIODARONE HCL [Suspect]
     Indication: VENTRICULAR TACHYCARDIA
     Dosage: 1.20 MG/DL (INFUSION RATE: 10 ML/HR)
     Route: 042
     Dates: start: 20080402, end: 20080404
  2. TEGRETOL [Concomitant]
     Indication: EPILEPSY
     Route: 048
     Dates: start: 20040101
  3. LASIX [Concomitant]
     Route: 048
     Dates: start: 20040101
  4. BUFFERIN [Concomitant]
     Indication: CEREBRAL INFARCTION
     Route: 048
     Dates: start: 20040101
  5. ZANTAC [Concomitant]
     Route: 048
     Dates: start: 20040101

REACTIONS (3)
  - CARDIAC FAILURE CONGESTIVE [None]
  - HEPATITIS FULMINANT [None]
  - MULTI-ORGAN FAILURE [None]
